FAERS Safety Report 8437965-7 (Version None)
Quarter: 2012Q2

REPORT INFORMATION
  Report Type: 
  Country: None (occurrence: None)
  Receive Date: 20120614
  Receipt Date: 20120529
  Transmission Date: 20120825
  Serious: Yes (Other)
  Sender: FDA-Public Use
  Company Number: US-AMGEN-USASP2011055830

PATIENT
  Sex: Female
  Weight: 68.027 kg

DRUGS (3)
  1. PROLIA [Suspect]
     Indication: OSTEOPOROSIS
     Dosage: 60 MG, Q6MO
     Route: 058
     Dates: start: 20110413, end: 20110413
  2. PNEUMOVAX 23 [Concomitant]
     Indication: PROPHYLAXIS
     Dates: start: 20110413, end: 20110413
  3. ZOSTAVAX [Concomitant]
     Dosage: UNK
     Dates: start: 20110413, end: 20110413

REACTIONS (1)
  - CELLULITIS [None]
